FAERS Safety Report 18625383 (Version 1)
Quarter: 2020Q4

REPORT INFORMATION
  Report Type: Spontaneous
  Country: US (occurrence: US)
  Receive Date: 20201216
  Receipt Date: 20201216
  Transmission Date: 20210114
  Serious: No
  Sender: FDA-Public Use
  Company Number: US-CATALYST PHARMACEUTICALS, INC-2020CAT00502

PATIENT
  Age: 44 Year
  Sex: Female
  Weight: 63.49 kg

DRUGS (1)
  1. FIRDAPSE [Suspect]
     Active Substance: AMIFAMPRIDINE PHOSPHATE
     Indication: MUSCULAR WEAKNESS
     Dosage: 2.5 MG, 3X/DAY
     Route: 048
     Dates: start: 20200825, end: 20200901

REACTIONS (3)
  - Product use in unapproved indication [Recovered/Resolved]
  - Faeces soft [Recovered/Resolved]
  - Nausea [Recovered/Resolved]

NARRATIVE: CASE EVENT DATE: 202008
